FAERS Safety Report 20694380 (Version 28)
Quarter: 2025Q4

REPORT INFORMATION
  Report Type: Spontaneous
  Country: US (occurrence: US)
  Receive Date: 20220411
  Receipt Date: 20251110
  Transmission Date: 20260118
  Serious: Yes (Hospitalization, Other)
  Sender: PFIZER
  Company Number: US-PFIZER INC-2020254690

PATIENT
  Age: 85 Year
  Sex: Female

DRUGS (8)
  1. PREMARIN [Suspect]
     Active Substance: ESTROGENS, CONJUGATED
     Indication: Atrophic vulvovaginitis
     Dosage: ONE APPLICATOR TWICE WEEKLY
     Route: 067
  2. PREMARIN [Suspect]
     Active Substance: ESTROGENS, CONJUGATED
     Indication: Menopause
     Dosage: APPLY ONE GRAM INTRAVAG TWICE WEEKLY
     Route: 067
  3. PREMARIN [Suspect]
     Active Substance: ESTROGENS, CONJUGATED
     Indication: Menopausal symptoms
  4. PREMARIN [Suspect]
     Active Substance: ESTROGENS, CONJUGATED
     Indication: Atrophic vulvovaginitis
     Dosage: TAKE 1 TABLET MONDAY- FRIDAY
     Route: 048
  5. PREMARIN [Suspect]
     Active Substance: ESTROGENS, CONJUGATED
     Indication: Menopause
     Dosage: TAKE 1 PILL BY MOUTH THREE TIMES WEEKLY
     Route: 048
  6. PREMARIN [Suspect]
     Active Substance: ESTROGENS, CONJUGATED
     Indication: Menopausal symptoms
     Dosage: 3 PILLS PER WEEK/ TAKE 1 PILL THREE TIMES WEEKLY BY MOUTH
     Route: 048
  7. XANAX [Concomitant]
     Active Substance: ALPRAZOLAM
     Dosage: TAKE HALF TABLET BY MOUTH ONE TIME DAILY
     Route: 048
  8. XALATAN [Concomitant]
     Active Substance: LATANOPROST
     Dosage: APPLY ONE DROP TO BOTH EYES DAILY AT BED TIME
     Route: 047

REACTIONS (5)
  - Hip fracture [Unknown]
  - Gait disturbance [Unknown]
  - Off label use [Unknown]
  - Off label use [Unknown]
  - Product prescribing error [Unknown]

NARRATIVE: CASE EVENT DATE: 20220101
